FAERS Safety Report 26202747 (Version 1)
Quarter: 2025Q4

REPORT INFORMATION
  Report Type: Spontaneous
  Country: CA (occurrence: CA)
  Receive Date: 20251226
  Receipt Date: 20251226
  Transmission Date: 20260118
  Serious: Yes (Death, Life-Threatening, Hospitalization, Disabling, Congenital Anomaly, Other)
  Sender: SANDOZ
  Company Number: CA-HALEON-2279578

PATIENT
  Age: 40 Year
  Sex: Female
  Weight: 96 kg

DRUGS (18)
  1. CANDESARTAN [Suspect]
     Active Substance: CANDESARTAN
     Indication: Rheumatoid arthritis
  2. CANDESARTAN [Suspect]
     Active Substance: CANDESARTAN
     Indication: Migraine
     Dosage: UNK
  3. ALENDRONATE SODIUM [Suspect]
     Active Substance: ALENDRONATE SODIUM
     Indication: Rheumatoid arthritis
     Dosage: UNK
  4. ALENDRONATE SODIUM [Suspect]
     Active Substance: ALENDRONATE SODIUM
     Indication: Product used for unknown indication
     Dosage: UNK
  5. ALENDRONATE SODIUM [Suspect]
     Active Substance: ALENDRONATE SODIUM
     Dosage: UNK
  6. HYRIMOZ [Suspect]
     Active Substance: ADALIMUMAB-ADAZ
     Indication: Rheumatoid arthritis
     Dosage: 40 MG, Q2MO (DOSAGE FORM: SOLUTION SUBCUTANEOUS)
  7. HYRIMOZ [Suspect]
     Active Substance: ADALIMUMAB-ADAZ
     Indication: Product used for unknown indication
     Dosage: 40 MG, QW
  8. HYRIMOZ [Suspect]
     Active Substance: ADALIMUMAB-ADAZ
     Dosage: 40 MG
  9. HYRIMOZ [Suspect]
     Active Substance: ADALIMUMAB-ADAZ
     Dosage: 40 MG
  10. HYRIMOZ [Suspect]
     Active Substance: ADALIMUMAB-ADAZ
     Dosage: UNK
  11. ERELZI [Suspect]
     Active Substance: ETANERCEPT-SZZS
     Indication: Rheumatoid arthritis
     Dosage: UNK
  12. ERELZI [Suspect]
     Active Substance: ETANERCEPT-SZZS
     Dosage: 50 MG, QW
  13. ERELZI [Suspect]
     Active Substance: ETANERCEPT-SZZS
     Dosage: UNK
  14. VOLTAREN [Suspect]
     Active Substance: DICLOFENAC SODIUM
     Indication: Product used for unknown indication
     Dosage: 50 MG
  15. VOLTAREN [Suspect]
     Active Substance: DICLOFENAC SODIUM
     Dosage: UNK
  16. VOLTAREN [Suspect]
     Active Substance: DICLOFENAC SODIUM
     Dosage: UNK
  17. VOLTAREN [Suspect]
     Active Substance: DICLOFENAC SODIUM
     Dosage: 50 MG
  18. AIMOVIG [Suspect]
     Active Substance: ERENUMAB-AOOE
     Indication: Migraine

REACTIONS (61)
  - Drug-induced liver injury [Fatal]
  - Malaise [Fatal]
  - Gastrointestinal disorder [Fatal]
  - Coeliac disease [Fatal]
  - Muscular weakness [Fatal]
  - Hypertension [Fatal]
  - Confusional state [Fatal]
  - Grip strength decreased [Fatal]
  - Asthenia [Fatal]
  - Vomiting [Fatal]
  - Breast cancer stage III [Fatal]
  - Hepatitis [Fatal]
  - Joint swelling [Fatal]
  - Weight increased [Fatal]
  - Psoriatic arthropathy [Fatal]
  - Type 2 diabetes mellitus [Fatal]
  - Liver function test increased [Fatal]
  - Obesity [Fatal]
  - Folliculitis [Fatal]
  - Dyspepsia [Fatal]
  - Contusion [Fatal]
  - Blister [Fatal]
  - Abdominal pain upper [Fatal]
  - Insomnia [Fatal]
  - Drug intolerance [Fatal]
  - Glossodynia [Fatal]
  - Muscle spasms [Fatal]
  - Fatigue [Fatal]
  - Hypersensitivity [Fatal]
  - Rash [Fatal]
  - Helicobacter infection [Fatal]
  - Nausea [Fatal]
  - Osteoarthritis [Fatal]
  - Hand deformity [Fatal]
  - Joint range of motion decreased [Fatal]
  - Gait inability [Fatal]
  - Blood cholesterol increased [Fatal]
  - Rheumatoid arthritis [Fatal]
  - Depression [Fatal]
  - Swelling [Fatal]
  - Infusion related reaction [Fatal]
  - Wound [Fatal]
  - Drug hypersensitivity [Fatal]
  - Lung disorder [Fatal]
  - Musculoskeletal stiffness [Fatal]
  - Neck pain [Fatal]
  - Facet joint syndrome [Fatal]
  - Injection site reaction [Fatal]
  - Gastrooesophageal reflux disease [Fatal]
  - Wound infection [Fatal]
  - Night sweats [Fatal]
  - Arthropathy [Fatal]
  - Dizziness [Fatal]
  - Adverse reaction [Fatal]
  - Underdose [Fatal]
  - Drug ineffective [Fatal]
  - Maternal exposure during pregnancy [Fatal]
  - Treatment failure [Fatal]
  - Intentional product use issue [Fatal]
  - Exposure during pregnancy [Fatal]
  - Off label use [Fatal]
